FAERS Safety Report 15075281 (Version 1)
Quarter: 2018Q2

REPORT INFORMATION
  Report Type: Spontaneous
  Country: US (occurrence: US)
  Receive Date: 20180627
  Receipt Date: 20180627
  Transmission Date: 20180711
  Serious: Yes (Hospitalization, Other)
  Sender: FDA-Public Use
  Company Number: US-SAOL THERAPEUTICS-2017SAO01409

PATIENT
  Age: 10 Year
  Sex: Male
  Weight: 45.17 kg

DRUGS (3)
  1. LIORESAL [Suspect]
     Active Substance: BACLOFEN
     Dosage: 99 ?G, \DAY
     Dates: start: 201708, end: 20170921
  2. LIORESAL [Suspect]
     Active Substance: BACLOFEN
     Dosage: UNK
     Route: 037
     Dates: start: 201311, end: 2017
  3. LIORESAL [Suspect]
     Active Substance: BACLOFEN
     Dosage: 600 ?G, \DAY
     Route: 037
     Dates: start: 20170921

REACTIONS (6)
  - Tremor [Recovered/Resolved]
  - Insomnia [Recovered/Resolved]
  - Hypertonia [Recovered/Resolved]
  - Anxiety [Recovered/Resolved]
  - Unresponsive to stimuli [Recovered/Resolved]
  - Device infusion issue [Unknown]

NARRATIVE: CASE EVENT DATE: 20170829
